FAERS Safety Report 4937438-X (Version None)
Quarter: 2006Q1

REPORT INFORMATION
  Report Type: 
  Country: None (occurrence: None)
  Receive Date: 20060309
  Receipt Date: 20060223
  Transmission Date: 20060701
  Serious: Yes (Other)
  Sender: FDA-Public Use
  Company Number: PHEH2006US02900

PATIENT
  Age: 56 Year
  Sex: Male
  Weight: 111.11 kg

DRUGS (7)
  1. AREDIA [Suspect]
     Indication: MULTIPLE MYELOMA
     Dosage: 60 TO 90 MG, UNK
     Dates: start: 19970317
  2. AREDIA [Suspect]
     Dosage: 90 MG, UNK
  3. ZOMETA [Suspect]
     Indication: MULTIPLE MYELOMA
     Route: 042
     Dates: start: 19970317
  4. THALIDOMIDE [Concomitant]
  5. PREDNISONE [Concomitant]
  6. ADRIAMYCIN PFS [Concomitant]
  7. ONCOVIN [Concomitant]

REACTIONS (3)
  - JAW OPERATION [None]
  - PAIN IN JAW [None]
  - POST PROCEDURAL COMPLICATION [None]
